FAERS Safety Report 4942883-2 (Version None)
Quarter: 2006Q1

REPORT INFORMATION
  Report Type: 
  Country: None (occurrence: None)
  Receive Date: 20060309
  Receipt Date: 20060228
  Transmission Date: 20060701
  Serious: No
  Sender: FDA-Public Use
  Company Number: 06H-028-0305960-00

PATIENT
  Age: 24 Year
  Sex: Female

DRUGS (5)
  1. POTASSIUM CHLORIDE [Suspect]
     Indication: POSTOPERATIVE ANALGESIA
     Dosage: EPIDURAL
     Route: 008
  2. 2% LIDOCAINE (LIDOCAINE) [Concomitant]
  3. CARBONATED LIDOCAINE (LIDOCAINE) [Concomitant]
  4. 200,000 EPINEPHRINE (EPINEPHRINE) [Concomitant]
  5. SUFENTANIL CITRATE [Concomitant]

REACTIONS (13)
  - AREFLEXIA [None]
  - AUTONOMIC NERVOUS SYSTEM IMBALANCE [None]
  - GRIP STRENGTH DECREASED [None]
  - LABILE BLOOD PRESSURE [None]
  - MEDICATION ERROR [None]
  - MUSCLE SPASMS [None]
  - PARAESTHESIA [None]
  - PARAPLEGIA [None]
  - SENSORY DISTURBANCE [None]
  - SPINAL CORD DISORDER [None]
  - SPINAL CORD OEDEMA [None]
  - TACHYCARDIA [None]
  - WRONG TECHNIQUE IN DRUG USAGE PROCESS [None]
